FAERS Safety Report 9271838 (Version 1)
Quarter: 2013Q2

REPORT INFORMATION
  Report Type: Spontaneous
  Country: FR (occurrence: FR)
  Receive Date: 20130506
  Receipt Date: 20130506
  Transmission Date: 20140414
  Serious: Yes (Hospitalization)
  Sender: FDA-Public Use
  Company Number: FR-JNJFOC-20130416640

PATIENT
  Age: 36 Year
  Sex: Male

DRUGS (6)
  1. IBUPROFEN [Suspect]
     Indication: RHINORRHOEA
     Route: 065
     Dates: start: 20121017
  2. IBUPROFEN [Suspect]
     Indication: EAR PAIN
     Route: 065
     Dates: start: 20121017
  3. ADVIL [Suspect]
     Indication: INFECTION
     Route: 048
  4. EPITOMAX [Concomitant]
     Indication: EPILEPSY
     Route: 065
  5. KEPPRA [Concomitant]
     Indication: EPILEPSY
     Route: 065
  6. TEGRETOL [Concomitant]
     Indication: EPILEPSY
     Route: 065

REACTIONS (1)
  - Dermatitis exfoliative [Recovered/Resolved]
